FAERS Safety Report 5998446-3 (Version None)
Quarter: 2008Q4

REPORT INFORMATION
  Report Type: 
  Country: None (occurrence: None)
  Receive Date: 20081213
  Receipt Date: 20080708
  Transmission Date: 20090506
  Serious: No
  Sender: FDA-Public Use
  Company Number: US-AMGEN-KDL286926

PATIENT
  Sex: Female
  Weight: 47 kg

DRUGS (1)
  1. ENBREL [Suspect]
     Indication: JUVENILE ARTHRITIS
     Route: 058
     Dates: start: 20070823

REACTIONS (6)
  - ARTHRALGIA [None]
  - CONTUSION [None]
  - FALL [None]
  - JOINT CREPITATION [None]
  - JOINT SWELLING [None]
  - UPPER RESPIRATORY TRACT INFECTION [None]
